FAERS Safety Report 7315884-7 (Version None)
Quarter: 2011Q1

REPORT INFORMATION
  Report Type: 
  Country: None (occurrence: None)
  Receive Date: 20110225
  Receipt Date: 20110216
  Transmission Date: 20110831
  Serious: Yes (Hospitalization)
  Sender: FDA-Public Use
  Company Number: US-JNJFOC-20101100427

PATIENT
  Sex: Male
  Weight: 44.1 kg

DRUGS (11)
  1. DULCOLAX [Concomitant]
  2. LEVSIN [Concomitant]
  3. PREDNISONE [Concomitant]
  4. PREVACID [Concomitant]
  5. FERROUS SULFATE TAB [Concomitant]
  6. ANTIBIOTICS [Concomitant]
     Indication: CROHN'S DISEASE
  7. NORVASC [Concomitant]
  8. ATENOLOL [Concomitant]
  9. INFLIXIMAB [Suspect]
     Indication: CROHN'S DISEASE
     Route: 042
  10. CIMZIA [Concomitant]
     Indication: CROHN'S DISEASE
  11. TENORMIN [Concomitant]

REACTIONS (1)
  - CROHN'S DISEASE [None]
